FAERS Safety Report 12489391 (Version 2)
Quarter: 2016Q3

REPORT INFORMATION
  Report Type: Report from Study
  Country: CA (occurrence: CA)
  Receive Date: 20160622
  Receipt Date: 20160711
  Transmission Date: 20161109
  Serious: Yes (Death)
  Sender: FDA-Public Use
  Company Number: PHHY2016CA085572

PATIENT
  Age: 77 Year
  Sex: Female

DRUGS (1)
  1. ACLASTA [Suspect]
     Active Substance: ZOLEDRONIC ACID
     Indication: OSTEOPOROSIS
     Dosage: 5 MG, UNK
     Route: 041
     Dates: start: 20150327

REACTIONS (1)
  - Death [Fatal]

NARRATIVE: CASE EVENT DATE: 20160523
